FAERS Safety Report 14243260 (Version 1)
Quarter: 2017Q4

REPORT INFORMATION
  Report Type: Report from Study
  Country: US (occurrence: US)
  Receive Date: 20171201
  Receipt Date: 20171201
  Transmission Date: 20180321
  Serious: Yes (Hospitalization, Other)
  Sender: FDA-Public Use
  Company Number: US-TEVA-2017-US-826630

PATIENT
  Age: 60 Year

DRUGS (1)
  1. QUININE SULFATE. [Suspect]
     Active Substance: QUININE SULFATE
     Route: 048

REACTIONS (2)
  - Thrombotic microangiopathy [Unknown]
  - Acute kidney injury [Unknown]
